FAERS Safety Report 6728589-8 (Version None)
Quarter: 2010Q2

REPORT INFORMATION
  Report Type: 
  Country: None (occurrence: None)
  Receive Date: 20100517
  Receipt Date: 20100505
  Transmission Date: 20101027
  Serious: Yes (Death, Other)
  Sender: FDA-Public Use
  Company Number: US-PFIZER INC-2009268899

PATIENT
  Sex: Female

DRUGS (1)
  1. REVATIO [Suspect]
     Dosage: 20 MG, 3X/DAY

REACTIONS (6)
  - ACUTE MYELOID LEUKAEMIA [None]
  - DIABETES MELLITUS [None]
  - PANCYTOPENIA [None]
  - PNEUMONIA [None]
  - PULMONARY FIBROSIS [None]
  - PULMONARY HYPERTENSION [None]
